FAERS Safety Report 26062120 (Version 6)
Quarter: 2025Q4

REPORT INFORMATION
  Report Type: Spontaneous
  Country: US (occurrence: US)
  Receive Date: 20251119
  Receipt Date: 20251231
  Transmission Date: 20260117
  Serious: No
  Sender: TOLMAR
  Company Number: US-Tolmar-TLM-2025-08534

PATIENT

DRUGS (3)
  1. ELIGARD [Suspect]
     Active Substance: LEUPROLIDE ACETATE
     Indication: Prostate cancer
     Dosage: LOT #: 15374CUS?EXPIRATION DATE: 06/30/2026?DOSE NOT ADMINISTERED
  2. ELIGARD [Suspect]
     Active Substance: LEUPROLIDE ACETATE
     Dosage: REPLACEMENT DOSE GIVEN
     Dates: start: 20251103
  3. DEVICE [Suspect]
     Active Substance: DEVICE
     Indication: Prostate cancer
     Dosage: NDC: 62935-0756-80?LOT #: 15374CUS?EXPIRATION DATE: 06/30/2026

REACTIONS (4)
  - Intercepted product preparation error [Unknown]
  - Product preparation error [Unknown]
  - Device breakage [Unknown]
  - Device leakage [Unknown]
